FAERS Safety Report 24590798 (Version 2)
Quarter: 2024Q4

REPORT INFORMATION
  Report Type: Report from Study
  Country: US (occurrence: US)
  Receive Date: 20241107
  Receipt Date: 20241113
  Transmission Date: 20250115
  Serious: Yes (Hospitalization, Other)
  Sender: JOHNSON AND JOHNSON
  Company Number: US-JNJFOC-20241067954

PATIENT
  Age: 44 Year
  Sex: Female
  Weight: 68.2 kg

DRUGS (17)
  1. EPOPROSTENOL SODIUM [Suspect]
     Active Substance: EPOPROSTENOL SODIUM
     Indication: Pulmonary hypertension
     Route: 042
     Dates: start: 202410
  2. EPOPROSTENOL SODIUM [Suspect]
     Active Substance: EPOPROSTENOL SODIUM
     Route: 042
  3. TYVASO DPI [Suspect]
     Active Substance: TREPROSTINIL
     Indication: Pulmonary arterial hypertension
     Route: 055
     Dates: start: 20231003
  4. TYVASO DPI [Suspect]
     Active Substance: TREPROSTINIL
     Route: 055
     Dates: start: 20231003
  5. TYVASO DPI [Suspect]
     Active Substance: TREPROSTINIL
     Dosage: (64 UG+48 UG)
     Route: 055
     Dates: start: 20231003, end: 202410
  6. REVATIO [Suspect]
     Active Substance: SILDENAFIL CITRATE
     Indication: Product used for unknown indication
     Route: 065
  7. SILDENAFIL CITRATE [Concomitant]
     Active Substance: SILDENAFIL CITRATE
  8. AMBRISENTAN [Concomitant]
     Active Substance: AMBRISENTAN
  9. ALBUTEROL [Concomitant]
     Active Substance: ALBUTEROL
  10. DIVALPROEX SODIUM [Concomitant]
     Active Substance: DIVALPROEX SODIUM
  11. OXYGEN [Concomitant]
     Active Substance: OXYGEN
  12. ASPIRIN [Concomitant]
     Active Substance: ASPIRIN
  13. IBUPROFEN [Concomitant]
     Active Substance: IBUPROFEN
  14. QVAR REDIHALER [Concomitant]
     Active Substance: BECLOMETHASONE DIPROPIONATE
  15. SODIUM CHLORIDE [Concomitant]
     Active Substance: SODIUM CHLORIDE
  16. STERILE WATER [Concomitant]
     Active Substance: WATER
  17. SOTATERCEPT [Concomitant]
     Active Substance: SOTATERCEPT

REACTIONS (10)
  - Pulmonary hypertension [Unknown]
  - Flushing [Unknown]
  - Malaise [Unknown]
  - Headache [Unknown]
  - Vomiting [Unknown]
  - Abdominal discomfort [Not Recovered/Not Resolved]
  - Product after taste [Unknown]
  - Product dose omission in error [Unknown]
  - Hypertension [Unknown]
  - Injection site haemorrhage [Unknown]

NARRATIVE: CASE EVENT DATE: 20241001
